FAERS Safety Report 23991053 (Version 1)
Quarter: 2024Q2

REPORT INFORMATION
  Report Type: Spontaneous
  Country: TR (occurrence: None)
  Receive Date: 20240619
  Receipt Date: 20240619
  Transmission Date: 20240716
  Serious: Yes (Life-Threatening)
  Sender: FDA-Public Use
  Company Number: 2024A139375

PATIENT
  Age: 21309 Day
  Sex: Female
  Weight: 80 kg

DRUGS (1)
  1. BYETTA [Suspect]
     Active Substance: EXENATIDE
     Dosage: BYETTA 5 ?G/20 ?L SC UNKNOWN
     Route: 058
     Dates: start: 20240612, end: 20240612

REACTIONS (3)
  - Erythema [Recovered/Resolved]
  - Contusion [Recovered/Resolved]
  - Swelling [Recovered/Resolved]

NARRATIVE: CASE EVENT DATE: 20240612
